FAERS Safety Report 17094400 (Version 2)
Quarter: 2019Q4

REPORT INFORMATION
  Report Type: Spontaneous
  Country: AU (occurrence: AU)
  Receive Date: 20191129
  Receipt Date: 20191212
  Transmission Date: 20200122
  Serious: Yes (Life-Threatening, Other)
  Sender: FDA-Public Use
  Company Number: AU-SHIRE-AU201941242

PATIENT

DRUGS (2)
  1. CEPROTIN [Suspect]
     Active Substance: PROTEIN C
     Dosage: DROP DOSE FREQUENCY FURTHER
     Route: 058
     Dates: start: 2014
  2. CEPROTIN [Suspect]
     Active Substance: PROTEIN C
     Indication: PROTEIN C DEFICIENCY
     Dosage: UNK, 2X A WEEK
     Route: 058
     Dates: start: 2014

REACTIONS (1)
  - Coagulopathy [Unknown]
